FAERS Safety Report 15880938 (Version 1)
Quarter: 2019Q1

REPORT INFORMATION
  Report Type: Spontaneous
  Country: IT (occurrence: IT)
  Receive Date: 20190128
  Receipt Date: 20190128
  Transmission Date: 20190417
  Serious: Yes (Other)
  Sender: FDA-Public Use
  Company Number: IT-MYLANLABS-2019M1006845

PATIENT
  Age: 67 Year
  Sex: Male
  Weight: 86 kg

DRUGS (1)
  1. BRUFEN [Suspect]
     Active Substance: IBUPROFEN
     Indication: BONE PAIN
     Dosage: 600 MILLIGRAM, PRN
     Route: 048
     Dates: start: 20180714

REACTIONS (2)
  - Lip oedema [Recovering/Resolving]
  - Angioedema [Recovering/Resolving]

NARRATIVE: CASE EVENT DATE: 20180714
